FAERS Safety Report 19901681 (Version 1)
Quarter: 2021Q3

REPORT INFORMATION
  Report Type: Report from Study
  Country: BE (occurrence: BE)
  Receive Date: 20210930
  Receipt Date: 20210930
  Transmission Date: 20211014
  Serious: Yes (Hospitalization)
  Sender: FDA-Public Use
  Company Number: BE-PFIZER INC-202101231424

PATIENT
  Age: 63 Year
  Sex: Male
  Weight: 79 kg

DRUGS (10)
  1. CYTARABINE. [Suspect]
     Active Substance: CYTARABINE
     Dosage: 2000 MG/M2
     Route: 042
     Dates: start: 20210805, end: 20210805
  2. SOLU?MEDROL [Concomitant]
     Active Substance: METHYLPREDNISOLONE SODIUM SUCCINATE
     Dosage: 80 MG
     Route: 042
     Dates: start: 20210811, end: 20210811
  3. CARBOPLATIN. [Suspect]
     Active Substance: CARBOPLATIN
     Indication: DIFFUSE LARGE B-CELL LYMPHOMA STAGE III
     Route: 042
  4. RITUXIMAB. [Suspect]
     Active Substance: RITUXIMAB
     Indication: DIFFUSE LARGE B-CELL LYMPHOMA STAGE III
     Dosage: 375 MG/M2 (ON 04AUG2021, HE RECEIVED LAST DOSE OF RITUXIMAB PRIOR TO ADVERSE EVENT)
     Route: 041
     Dates: start: 20210804, end: 20210804
  5. PARACETAMOL [Concomitant]
     Active Substance: ACETAMINOPHEN
     Dosage: 1 G
     Route: 048
     Dates: start: 20210811, end: 20210811
  6. TAVEGYL [Concomitant]
     Active Substance: CLEMASTINE FUMARATE
     Dosage: 2 MG
     Route: 042
     Dates: start: 20210811, end: 20210811
  7. OXALIPLATIN. [Suspect]
     Active Substance: OXALIPLATIN
     Indication: DIFFUSE LARGE B-CELL LYMPHOMA STAGE III
     Dosage: UNK
     Route: 042
  8. CYTARABINE. [Suspect]
     Active Substance: CYTARABINE
     Indication: DIFFUSE LARGE B-CELL LYMPHOMA STAGE III
     Dosage: 2000 MG/M2, 2X/DAY
     Route: 042
     Dates: start: 20210804, end: 20210804
  9. MEDROL [Concomitant]
     Active Substance: METHYLPREDNISOLONE
     Dosage: 80 MG
     Route: 048
     Dates: start: 20210812, end: 202108
  10. DEXAMETHASONE. [Suspect]
     Active Substance: DEXAMETHASONE
     Indication: DIFFUSE LARGE B-CELL LYMPHOMA STAGE III
     Dosage: 40 MG
     Route: 042
     Dates: start: 20210804, end: 20210807

REACTIONS (1)
  - Cardiac failure [Recovered/Resolved]

NARRATIVE: CASE EVENT DATE: 20210826
